FAERS Safety Report 7465402-8 (Version None)
Quarter: 2011Q2

REPORT INFORMATION
  Report Type: 
  Country: None (occurrence: None)
  Receive Date: 20110509
  Receipt Date: 20100602
  Transmission Date: 20111010
  Serious: No
  Sender: FDA-Public Use
  Company Number: US-BAUSCH-2010BL002964

PATIENT
  Age: 53 Year
  Sex: Female
  Weight: 86 kg

DRUGS (4)
  1. VITAMIN B-12 [Concomitant]
  2. COSEQUIN [Concomitant]
     Indication: ARTHRITIS
     Route: 048
     Dates: start: 20000101
  3. LOTEMAX [Suspect]
     Indication: CONJUNCTIVITIS
     Route: 047
     Dates: start: 20100601, end: 20100602
  4. SOY ESTROGEN [Concomitant]

REACTIONS (7)
  - FEELING JITTERY [None]
  - ABNORMAL BEHAVIOUR [None]
  - DIARRHOEA [None]
  - ANGER [None]
  - VERTIGO [None]
  - POLLAKIURIA [None]
  - ABDOMINAL DISCOMFORT [None]
